FAERS Safety Report 5338953-X (Version None)
Quarter: 2007Q2

REPORT INFORMATION
  Report Type: 
  Country: None (occurrence: None)
  Receive Date: 20070530
  Receipt Date: 20070515
  Transmission Date: 20071010
  Serious: Yes (Hospitalization, Other)
  Sender: FDA-Public Use
  Company Number: US-PFIZER INC-2006156187

PATIENT
  Sex: Female

DRUGS (2)
  1. BEXTRA [Suspect]
     Route: 048
  2. VIOXX [Suspect]
     Route: 048
     Dates: start: 20040519

REACTIONS (7)
  - ACUTE MYOCARDIAL INFARCTION [None]
  - CEREBROVASCULAR ACCIDENT [None]
  - DEPRESSION [None]
  - DYSPHAGIA [None]
  - HEMIPLEGIA [None]
  - HYPERTENSION [None]
  - RENAL FAILURE [None]
